FAERS Safety Report 8201482-X (Version None)
Quarter: 2012Q1

REPORT INFORMATION
  Report Type: 
  Country: None (occurrence: None)
  Receive Date: 20120312
  Receipt Date: 20120227
  Transmission Date: 20120608
  Serious: No
  Sender: FDA-Public Use
  Company Number: US-ROXANE LABORATORIES, INC.-2012-RO-00572RO

PATIENT
  Sex: Male

DRUGS (1)
  1. FLUTICASONE PROPIONATE [Suspect]
     Route: 055

REACTIONS (4)
  - DRUG INEFFECTIVE [None]
  - NASAL OEDEMA [None]
  - RHINORRHOEA [None]
  - HEADACHE [None]
